FAERS Safety Report 21437918 (Version 2)
Quarter: 2022Q4

REPORT INFORMATION
  Report Type: Report from Study
  Country: US (occurrence: US)
  Receive Date: 20221011
  Receipt Date: 20221222
  Transmission Date: 20230112
  Serious: No
  Sender: FDA-Public Use
  Company Number: US-ABBVIE-4148033

PATIENT
  Sex: Female

DRUGS (3)
  1. SKYRIZI [Suspect]
     Active Substance: RISANKIZUMAB-RZAA
     Indication: Psoriasis
     Route: 058
  2. SKYRIZI [Suspect]
     Active Substance: RISANKIZUMAB-RZAA
     Dosage: FORM STRENGTH: 150 MG?WEEK 0 AND WEEK 4 THEN EVERY 90 DAYS
     Route: 058
  3. ILUMYA [Concomitant]
     Active Substance: TILDRAKIZUMAB-ASMN
     Indication: Product used for unknown indication

REACTIONS (2)
  - Nail psoriasis [Unknown]
  - Nail bed tenderness [Unknown]
